FAERS Safety Report 21751193 (Version 1)
Quarter: 2022Q4

REPORT INFORMATION
  Report Type: Spontaneous
  Country: US (occurrence: US)
  Receive Date: 20221220
  Receipt Date: 20221220
  Transmission Date: 20230113
  Serious: Yes (Other)
  Sender: FDA-Public Use
  Company Number: US-UCBSA-2022071303

PATIENT
  Age: 19 Year
  Sex: Male

DRUGS (3)
  1. BRIVIACT [Suspect]
     Active Substance: BRIVARACETAM
     Indication: Seizure
     Dosage: 300 MILLIGRAM, UNK
     Dates: start: 20221201
  2. ZONEGRAN [Suspect]
     Active Substance: ZONISAMIDE
     Indication: Seizure
     Dosage: UNK
  3. LAMICTAL [Suspect]
     Active Substance: LAMOTRIGINE
     Indication: Seizure
     Dosage: UNK

REACTIONS (4)
  - Seizure [Unknown]
  - Mania [Unknown]
  - Abnormal behaviour [Unknown]
  - Insomnia [Unknown]

NARRATIVE: CASE EVENT DATE: 20221209
